FAERS Safety Report 8381970-6 (Version None)
Quarter: 2012Q1

REPORT INFORMATION
  Report Type: 
  Country: None (occurrence: None)
  Receive Date: 20120323
  Receipt Date: 20110615
  Transmission Date: 20120608
  Serious: Yes (Hospitalization, Other)
  Sender: FDA-Public Use
  Company Number: 163-21880-11051776

PATIENT
  Age: 75 Year
  Sex: Female
  Weight: 86.1834 kg

DRUGS (7)
  1. REVLIMID [Suspect]
     Indication: MYELODYSPLASTIC SYNDROME
     Dosage: 5 MG, X 21 DAYS, PO
     Route: 048
     Dates: start: 20110408
  2. METFORMIN HCL [Concomitant]
  3. SLEEP AID (SCOPOLAMINE AMINOXIDE HYDROBROMIDE) [Concomitant]
  4. PREDNISONE TAB [Concomitant]
  5. CALTRATE-D (LEKOVIT CA) [Concomitant]
  6. ATENOLOL [Concomitant]
  7. GLIPIZIDE [Concomitant]

REACTIONS (9)
  - GOUT [None]
  - INFLAMMATION [None]
  - PAIN [None]
  - SWELLING [None]
  - CONTUSION [None]
  - INSOMNIA [None]
  - FATIGUE [None]
  - PLATELET COUNT DECREASED [None]
  - CELLULITIS [None]
